FAERS Safety Report 6888854-0 (Version None)
Quarter: 2010Q3

REPORT INFORMATION
  Report Type: 
  Country: None (occurrence: None)
  Receive Date: 20100730
  Receipt Date: 20071127
  Transmission Date: 20110219
  Serious: Yes (Hospitalization, Other)
  Sender: FDA-Public Use
  Company Number: US-PFIZER INC-2007096232

PATIENT
  Sex: Female
  Weight: 87.5 kg

DRUGS (3)
  1. LIPITOR [Suspect]
     Indication: BLOOD CHOLESTEROL INCREASED
     Route: 048
  2. THEOPHYLLINE [Concomitant]
  3. PREDNISONE [Concomitant]

REACTIONS (5)
  - ARTHROPATHY [None]
  - DIARRHOEA [None]
  - HYPERTENSION [None]
  - PAIN IN EXTREMITY [None]
  - VOMITING [None]
